FAERS Safety Report 18126464 (Version 2)
Quarter: 2020Q3

REPORT INFORMATION
  Report Type: Spontaneous
  Country: DE (occurrence: DE)
  Receive Date: 20200808
  Receipt Date: 20200819
  Transmission Date: 20201103
  Serious: Yes (Hospitalization)
  Sender: FDA-Public Use
  Company Number: NVSC2020DE219498

PATIENT
  Age: 17 Year
  Sex: Female
  Weight: 64 kg

DRUGS (5)
  1. ZONISAMIDE. [Concomitant]
     Active Substance: ZONISAMIDE
     Indication: PRODUCT USED FOR UNKNOWN INDICATION
     Dosage: 100 MG, QD
     Route: 048
  2. FOLSAEURE [Concomitant]
     Active Substance: FOLIC ACID
     Indication: PRODUCT USED FOR UNKNOWN INDICATION
     Dosage: 1 DF, QW
     Route: 048
  3. VITAMIN D [Concomitant]
     Active Substance: VITAMIN D NOS
     Indication: PRODUCT USED FOR UNKNOWN INDICATION
     Dosage: 1000 IU, QD
     Route: 065
  4. LAMOTRIGINE. [Suspect]
     Active Substance: LAMOTRIGINE
     Indication: PRODUCT USED FOR UNKNOWN INDICATION
     Dosage: 300 MG, QD (2 SEPARATED DOSES)
     Route: 048
  5. BRIVIACT [Concomitant]
     Active Substance: BRIVARACETAM
     Indication: PRODUCT USED FOR UNKNOWN INDICATION
     Dosage: 300 MG, QD (EVERY DAYS 2 SEPARATED DOSES)
     Route: 048

REACTIONS (5)
  - Hypertriglyceridaemia [Not Recovered/Not Resolved]
  - Pyrexia [Not Recovered/Not Resolved]
  - Haemophagocytic lymphohistiocytosis [Not Recovered/Not Resolved]
  - Pancytopenia [Not Recovered/Not Resolved]
  - Hepatosplenomegaly [Not Recovered/Not Resolved]

NARRATIVE: CASE EVENT DATE: 202006
